FAERS Safety Report 4321914-7 (Version None)
Quarter: 2004Q1

REPORT INFORMATION
  Report Type: 
  Country: None (occurrence: None)
  Receive Date: 20040319
  Receipt Date: 20031121
  Transmission Date: 20041129
  Serious: No
  Sender: FDA-Public Use
  Company Number: 200313766

PATIENT
  Age: 67 Year
  Sex: Female
  Weight: 72.5755 kg

DRUGS (3)
  1. LUMIGAN [Suspect]
     Indication: GLAUCOMA
     Dosage: 2 DROP QHS EYE
     Route: 047
     Dates: start: 20031020, end: 20031107
  2. DAILY VITAMINS [Concomitant]
  3. ASPIRIN [Concomitant]

REACTIONS (1)
  - URINE ODOUR ABNORMAL [None]
